FAERS Safety Report 18448701 (Version 1)
Quarter: 2020Q4

REPORT INFORMATION
  Report Type: Report from Study
  Country: CA (occurrence: CA)
  Receive Date: 20201030
  Receipt Date: 20201030
  Transmission Date: 20210114
  Serious: Yes (Other)
  Sender: FDA-Public Use
  Company Number: CA-JNJFOC-20200834058

PATIENT
  Age: 63 Year
  Sex: Male
  Weight: 85 kg

DRUGS (2)
  1. STELARA [Suspect]
     Active Substance: USTEKINUMAB
     Route: 058
     Dates: start: 2020
  2. STELARA [Suspect]
     Active Substance: USTEKINUMAB
     Indication: CROHN^S DISEASE
     Route: 058
     Dates: start: 20160824

REACTIONS (4)
  - Abscess [Unknown]
  - Headache [Recovered/Resolved]
  - Eye infection [Recovered/Resolved]
  - Crohn^s disease [Recovering/Resolving]

NARRATIVE: CASE EVENT DATE: 20200815
